FAERS Safety Report 16557059 (Version 3)
Quarter: 2019Q3

REPORT INFORMATION
  Report Type: Spontaneous
  Country: US (occurrence: US)
  Receive Date: 20190711
  Receipt Date: 20190722
  Transmission Date: 20191004
  Serious: No
  Sender: FDA-Public Use
  Company Number: US-AMGEN-USASP2019107622

PATIENT
  Age: 70 Year
  Sex: Female
  Weight: 92.97 kg

DRUGS (15)
  1. REPATHA [Suspect]
     Active Substance: EVOLOCUMAB
     Indication: PRODUCT USED FOR UNKNOWN INDICATION
     Dosage: 140 MILLIGRAM, Q2WK
     Route: 065
     Dates: start: 201904
  2. MULTIVITAMIN 6 [Concomitant]
     Dosage: UNK
     Route: 048
  3. BAYER ASPIRIN [Concomitant]
     Active Substance: ASPIRIN
     Indication: CORONARY ARTERY DISEASE
     Dosage: 81 MILLIGRAM
  4. APIXABAN [Concomitant]
     Active Substance: APIXABAN
     Dosage: 5 MILLIGRAM, BID
     Route: 048
  5. LANCETAN [Concomitant]
     Dosage: UNK UNK, BID
  6. TRULICITY [Concomitant]
     Active Substance: DULAGLUTIDE
     Indication: TYPE 1 DIABETES MELLITUS
     Dosage: 0.75 MILLIGRAM, QWK
  7. HUMULIN NOS [Concomitant]
     Active Substance: INSULIN HUMAN
     Indication: TYPE 1 DIABETES MELLITUS
     Dosage: UNK
  8. COLLAGEN [Concomitant]
     Active Substance: COLLAGEN
     Dosage: UNK
  9. OMEGA 3 [FISH OIL] [Concomitant]
     Active Substance: FISH OIL
     Dosage: UNK
  10. ASPIRIN 81 [Concomitant]
     Active Substance: ASPIRIN
     Dosage: 81 MILLIGRAM, QD
     Route: 048
  11. DULAGLUTIDE. [Concomitant]
     Active Substance: DULAGLUTIDE
     Dosage: 0.5 MILLIGRAM, QWK
     Route: 058
  12. NOVOLIN [Concomitant]
     Active Substance: INSULIN HUMAN
     Dosage: 50 UNIT, BID
  13. VITAMIN C [Concomitant]
     Active Substance: ASCORBIC ACID
     Dosage: 50 MILLIGRAM
     Route: 048
  14. INSULIN [Concomitant]
     Active Substance: INSULIN NOS
     Dosage: UNK UNK, BID
  15. ROSUVASTATIN. [Concomitant]
     Active Substance: ROSUVASTATIN
     Dosage: 10 MILLIGRAM, QD
     Route: 048

REACTIONS (2)
  - Dizziness [Unknown]
  - Blood glucose decreased [Unknown]

NARRATIVE: CASE EVENT DATE: 20190701
